FAERS Safety Report 8383362 (Version 6)
Quarter: 2012Q4

REPORT INFORMATION
  Report Type: 
  Country: US (occurrence: US)
  Receive Date: 20120201
  Receipt Date: 20121129
  Transmission Date: 20130627
  Serious: Yes (Hospitalization, Congenital Anomaly)
  Sender: FDA-Public Use
  Company Number: US-GLAXOSMITHKLINE-A0930797A

PATIENT
  Age: 0 Year
  Sex: Female
  Weight: 3.2 kg

DRUGS (1)
  1. PAXIL CR [Suspect]
     Indication: DEPRESSION
     Dosage: 25MG Per day
     Route: 064
     Dates: start: 2004

REACTIONS (7)
  - Cleft lip and palate [Unknown]
  - Congenital oral malformation [Unknown]
  - Dyspnoea [Unknown]
  - Speech disorder [Unknown]
  - Gastrooesophageal reflux disease [Unknown]
  - Gastrointestinal disorder [Unknown]
  - Foetal exposure during pregnancy [Unknown]
